FAERS Safety Report 8586774-7 (Version None)
Quarter: 2012Q3

REPORT INFORMATION
  Report Type: 
  Country: None (occurrence: None)
  Receive Date: 20120810
  Receipt Date: 20120801
  Transmission Date: 20120928
  Serious: Yes (Hospitalization, Other)
  Sender: FDA-Public Use
  Company Number: US-ELI_LILLY_AND_COMPANY-US201208001043

PATIENT
  Sex: Female

DRUGS (3)
  1. HUMATROPE [Suspect]
     Indication: BLOOD GROWTH HORMONE
     Dosage: 0.2 MG, UNK
     Dates: start: 20050101
  2. ASPIRIN [Concomitant]
     Dosage: 2 DF, UNK
  3. PROZAC [Concomitant]
     Dosage: 20 MG, UNK

REACTIONS (4)
  - BALANCE DISORDER [None]
  - TINNITUS [None]
  - CARDIAC DISORDER [None]
  - HEARING IMPAIRED [None]
